FAERS Safety Report 5280813-7 (Version None)
Quarter: 2007Q1

REPORT INFORMATION
  Report Type: 
  Country: None (occurrence: None)
  Receive Date: 20070329
  Receipt Date: 20070320
  Transmission Date: 20070707
  Serious: Yes (Other)
  Sender: FDA-Public Use
  Company Number: US-PFIZER INC-2007021556

PATIENT
  Sex: Female

DRUGS (2)
  1. ZIPRASIDONE (CAPS) [Suspect]
     Indication: BIPOLAR DISORDER
  2. ZIPRASIDONE (CAPS) [Suspect]
     Indication: SCHIZOPHRENIA

REACTIONS (2)
  - AGGRESSION [None]
  - SPEECH DISORDER [None]
